FAERS Safety Report 19718091 (Version 3)
Quarter: 2021Q4

REPORT INFORMATION
  Report Type: Spontaneous
  Country: US (occurrence: US)
  Receive Date: 20210818
  Receipt Date: 20211007
  Transmission Date: 20220303
  Serious: Yes (Other)
  Sender: FDA-Public Use
  Company Number: US-PFIZER INC-202101015521

PATIENT
  Age: 71 Year
  Sex: Female
  Weight: 54.42 kg

DRUGS (3)
  1. CHANTIX [Suspect]
     Active Substance: VARENICLINE TARTRATE
     Indication: Smoking cessation therapy
     Dosage: STARTER PACK. FOLLOWED PACKAGE INSTRUCTIONS
     Dates: start: 20210603, end: 202106
  2. CHANTIX [Suspect]
     Active Substance: VARENICLINE TARTRATE
     Dosage: CONTINUING PACK, FOLLOWED PACKAGE INSTRUCTIONS
     Dates: start: 20210620, end: 20210621
  3. CHANTIX [Suspect]
     Active Substance: VARENICLINE TARTRATE
     Dosage: PER DIRECTIONS ON BOXES
     Dates: start: 20210604

REACTIONS (4)
  - Recalled product administered [Recovered/Resolved]
  - Haematemesis [Recovered/Resolved]
  - Nausea [Recovered/Resolved]
  - Abdominal discomfort [Unknown]

NARRATIVE: CASE EVENT DATE: 20210601
